FAERS Safety Report 8796083 (Version 3)
Quarter: 2016Q2

REPORT INFORMATION
  Report Type: Spontaneous
  Country: FR (occurrence: FR)
  Receive Date: 20120920
  Receipt Date: 20160411
  Transmission Date: 20160815
  Serious: Yes (Hospitalization, Other)
  Sender: FDA-Public Use
  Company Number: FR-BRISTOL-MYERS SQUIBB COMPANY-16950008

PATIENT
  Age: 86 Year
  Sex: Female

DRUGS (9)
  1. DAFALGAN [Concomitant]
     Active Substance: ACETAMINOPHEN
     Indication: PAIN
     Dosage: 500 MG, PRN
     Route: 048
  2. COUMADIN [Suspect]
     Active Substance: WARFARIN SODIUM
     Indication: PHLEBITIS
     Dosage: SCORED TAB. 1.5 TABLETS DAILY  7AUG12:2MG/2TABS/DAY
     Route: 048
     Dates: start: 20120807, end: 20120813
  3. SPASFON-LYOC [Suspect]
     Active Substance: PHLOROGLUCINOL
     Indication: PAIN
     Dosage: 80 MG, TID
     Route: 048
     Dates: start: 201207, end: 201208
  4. NEURONTIN [Concomitant]
     Active Substance: GABAPENTIN
     Indication: PRODUCT USED FOR UNKNOWN INDICATION
     Dosage: CAPS
     Route: 048
  5. RENITEC [Concomitant]
     Active Substance: ENALAPRIL MALEATE
     Indication: PRODUCT USED FOR UNKNOWN INDICATION
     Dosage: 1 TAB/DAY
     Route: 048
  6. LOVENOX [Concomitant]
     Active Substance: ENOXAPARIN SODIUM
     Indication: PRODUCT USED FOR UNKNOWN INDICATION
     Dosage: 1DF:1 INJ
     Route: 058
     Dates: start: 20120805, end: 20120809
  7. TRANSIPEG [Suspect]
     Active Substance: POLYETHYLENE GLYCOL 3350
     Indication: CONSTIPATION
     Dosage: POWDER FOR ORAL SOLUTION IN SACHET (MACROGOL 3350) 2 SACHETS IN THE MORNING
     Route: 048
     Dates: start: 201207, end: 201208
  8. DEBRIDAT [Suspect]
     Active Substance: TRIMEBUTINE MALEATE
     Indication: PAIN
     Dosage: FLIMCOATED TABS
     Route: 048
     Dates: start: 20120719, end: 201208
  9. CLAMOXYL [Suspect]
     Active Substance: AMOXICILLIN\CLAVULANIC ACID
     Indication: ERYTHEMA
     Dosage: 500 MG, TID
     Route: 048
     Dates: start: 201208, end: 201208

REACTIONS (3)
  - Erythema [Recovered/Resolved]
  - International normalised ratio increased [Recovered/Resolved]
  - Urticaria [Recovered/Resolved]

NARRATIVE: CASE EVENT DATE: 20120810
